FAERS Safety Report 4509423-3 (Version None)
Quarter: 2004Q4

REPORT INFORMATION
  Report Type: 
  Country: None (occurrence: None)
  Receive Date: 20041025
  Receipt Date: 20040629
  Transmission Date: 20050328
  Serious: Yes (Hospitalization)
  Sender: FDA-Public Use
  Company Number: US-JNJFOC-20040700310

PATIENT
  Age: 51 Year
  Sex: Female

DRUGS (13)
  1. INFLIXIMAB (INFLIXIMAB, RECOMBINANT) LYOPHILIZED POWDER [Suspect]
     Indication: RHEUMATOID ARTHRITIS
     Dosage: INTRAVENOUS
     Route: 042
     Dates: start: 20010320, end: 20011030
  2. ARAVA [Concomitant]
  3. CELEBREX [Concomitant]
  4. ULTRAM [Concomitant]
  5. COZAAR [Concomitant]
  6. HYZAAR [Concomitant]
  7. TENORMIN [Concomitant]
  8. MULTIVITAMIN (MULTIVITAMINS) [Concomitant]
  9. LEXAPRO [Concomitant]
  10. VITAMIN C (ASCORBIC ACID) [Concomitant]
  11. CALCIUM [Concomitant]
  12. PEPCID [Concomitant]
  13. AXID [Concomitant]

REACTIONS (2)
  - LOCALISED INFECTION [None]
  - STAPHYLOCOCCAL INFECTION [None]
